FAERS Safety Report 6430764-7 (Version None)
Quarter: 2009Q4

REPORT INFORMATION
  Report Type: 
  Country: None (occurrence: None)
  Receive Date: 20091106
  Receipt Date: 20091029
  Transmission Date: 20100525
  Serious: Yes (Hospitalization)
  Sender: FDA-Public Use
  Company Number: HK-NAPPMUNDI-GBR-2009-0005767

PATIENT
  Age: 89 Year
  Sex: Male

DRUGS (4)
  1. THEOPHYLLINE [Suspect]
     Indication: OVERDOSE
     Dosage: 200 MG, UNK
  2. METHYLDOPA [Interacting]
     Indication: OVERDOSE
     Dosage: 250 MG, UNK
  3. INDAPAMIDE [Interacting]
     Indication: OVERDOSE
     Dosage: 2.5 MG, UNK
  4. PARACETAMOL [Interacting]
     Dosage: 500 MG, UNK

REACTIONS (12)
  - BLOOD POTASSIUM DECREASED [None]
  - BLOOD SODIUM DECREASED [None]
  - COMA [None]
  - DEPRESSION [None]
  - DRUG INTERACTION [None]
  - HYPOKALAEMIC SYNDROME [None]
  - HYPOTENSION [None]
  - INTENTIONAL OVERDOSE [None]
  - POLYURIA [None]
  - RESPIRATORY RATE INCREASED [None]
  - SINUS TACHYCARDIA [None]
  - VOMITING [None]
